FAERS Safety Report 23060112 (Version 1)
Quarter: 2023Q4

REPORT INFORMATION
  Report Type: Spontaneous
  Country: FR (occurrence: FR)
  Receive Date: 20231012
  Receipt Date: 20231012
  Transmission Date: 20240110
  Serious: Yes (Other)
  Sender: FDA-Public Use
  Company Number: None

PATIENT
  Age: 48 Year
  Sex: Male
  Weight: 70 kg

DRUGS (44)
  1. PROPOFOL [Suspect]
     Active Substance: PROPOFOL
     Indication: Sedation
     Route: 042
     Dates: start: 20230618, end: 20230702
  2. PROPOFOL [Suspect]
     Active Substance: PROPOFOL
     Route: 042
     Dates: start: 20230717, end: 20230731
  3. PROPOFOL [Suspect]
     Active Substance: PROPOFOL
     Route: 042
     Dates: start: 20230725, end: 20230731
  4. PROPOFOL [Suspect]
     Active Substance: PROPOFOL
     Route: 042
     Dates: start: 20230717, end: 20230725
  5. PROPOFOL [Suspect]
     Active Substance: PROPOFOL
     Route: 042
     Dates: start: 20230613, end: 20230702
  6. PROPOFOL [Suspect]
     Active Substance: PROPOFOL
     Route: 042
     Dates: start: 20230613, end: 20230618
  7. MIDAZOLAM MYLAN 5 mg/ml, solution for injection (IM-IV) or rectal use [Concomitant]
     Indication: Product used for unknown indication
     Dates: start: 20230727, end: 20230728
  8. MIDAZOLAM MYLAN 5 mg/ml, solution for injection (IM-IV) or rectal use [Concomitant]
     Dosage: 3.5 MG
     Dates: start: 20230717, end: 20230719
  9. MIDAZOLAM MYLAN 5 mg/ml, solution for injection (IM-IV) or rectal use [Concomitant]
     Dates: start: 20230706, end: 20230717
  10. MIDAZOLAM MYLAN 5 mg/ml, solution for injection (IM-IV) or rectal use [Concomitant]
     Dates: start: 20230702, end: 20230706
  11. KARDEGIC 75 mg, powder for oral solution in sachet [Concomitant]
     Indication: Product used for unknown indication
     Dates: start: 20230626, end: 20230816
  12. SUFENTANIL MYLAN 50 micrograms/ml, solution for injection [Concomitant]
     Indication: Product used for unknown indication
     Dates: start: 20230719, end: 20230720
  13. SUFENTANIL MYLAN 50 micrograms/ml, solution for injection [Concomitant]
     Dates: start: 20230707, end: 20230707
  14. SUFENTANIL MYLAN 50 micrograms/ml, solution for injection [Concomitant]
     Dates: start: 20230719, end: 20230719
  15. SUFENTANIL MYLAN 50 micrograms/ml, solution for injection [Concomitant]
     Dates: start: 20230707, end: 20230719
  16. SUFENTANIL MYLAN 50 micrograms/ml, solution for injection [Concomitant]
     Dates: start: 20230621, end: 20230720
  17. SUFENTANIL MYLAN 50 micrograms/ml, solution for injection [Concomitant]
     Dates: start: 20230621, end: 20230706
  18. SUFENTANIL MYLAN 50 micrograms/ml, solution for injection [Concomitant]
     Dates: start: 20230706, end: 20230707
  19. NIMBEX 5 mg/ml, solution for injection [Concomitant]
     Indication: Product used for unknown indication
     Dates: start: 20230712, end: 20230713
  20. NIMBEX 5 mg/ml, solution for injection [Concomitant]
     Dates: start: 20230707, end: 20230712
  21. NIMBEX 5 mg/ml, solution for injection [Concomitant]
     Dates: start: 20230629, end: 20230704
  22. NIMBEX 5 mg/ml, solution for injection [Concomitant]
     Dates: start: 20230704, end: 20230707
  23. CEFEPIME [Concomitant]
     Active Substance: CEFEPIME HYDROCHLORIDE
     Indication: Product used for unknown indication
     Dates: start: 20230702, end: 20230702
  24. CEFEPIME [Concomitant]
     Active Substance: CEFEPIME HYDROCHLORIDE
     Dates: start: 20230702, end: 20230705
  25. POLYETHYLENE GLYCOL 4000\POTASSIUM CHLORIDE\SODIUM BICARBONATE\SODIUM [Concomitant]
     Active Substance: POLYETHYLENE GLYCOL 4000\POTASSIUM CHLORIDE\SODIUM BICARBONATE\SODIUM CHLORIDE\SODIUM SULFATE
     Indication: Product used for unknown indication
     Dates: start: 20230702, end: 20230702
  26. POLYETHYLENE GLYCOL 4000\POTASSIUM CHLORIDE\SODIUM BICARBONATE\SODIUM [Concomitant]
     Active Substance: POLYETHYLENE GLYCOL 4000\POTASSIUM CHLORIDE\SODIUM BICARBONATE\SODIUM CHLORIDE\SODIUM SULFATE
     Dates: start: 20230701, end: 20230701
  27. PANTOPRAZOLE SUN PHARMA 40 mg, powder for solution for injection [Concomitant]
     Indication: Product used for unknown indication
     Dates: start: 20230613, end: 20230630
  28. PANTOPRAZOLE SUN PHARMA 40 mg, powder for solution for injection [Concomitant]
     Dates: start: 20230630, end: 20230701
  29. PANTOPRAZOLE SUN PHARMA 40 mg, powder for solution for injection [Concomitant]
     Dates: start: 20230701, end: 20230703
  30. HEPARIN SODIUM [Concomitant]
     Active Substance: HEPARIN SODIUM
     Indication: Product used for unknown indication
     Dosage: 12000 IU
     Dates: start: 20230717, end: 20230717
  31. HEPARIN SODIUM [Concomitant]
     Active Substance: HEPARIN SODIUM
     Dosage: 20000 IU
     Dates: start: 20230627, end: 20230629
  32. HEPARIN SODIUM [Concomitant]
     Active Substance: HEPARIN SODIUM
     Dosage: 8000 IU
     Dates: start: 20230708, end: 20230713
  33. HEPARIN SODIUM [Concomitant]
     Active Substance: HEPARIN SODIUM
     Dosage: 10000 IU
     Dates: start: 20230704, end: 20230705
  34. HEPARIN SODIUM [Concomitant]
     Active Substance: HEPARIN SODIUM
     Dosage: 15000 IU
     Dates: start: 20230627, end: 20230627
  35. HEPARIN SODIUM [Concomitant]
     Active Substance: HEPARIN SODIUM
     Dosage: 8000 IU
     Dates: start: 20230725, end: 20230730
  36. HEPARIN SODIUM [Concomitant]
     Active Substance: HEPARIN SODIUM
     Dosage: 7000 IU
     Dates: start: 20230731, end: 20230812
  37. HEPARIN SODIUM [Concomitant]
     Active Substance: HEPARIN SODIUM
     Dosage: 10000 IU
     Dates: start: 20230723, end: 20230723
  38. HEPARIN SODIUM [Concomitant]
     Active Substance: HEPARIN SODIUM
     Dosage: 10000 IU
     Dates: start: 20230704, end: 20230704
  39. HEPARIN SODIUM [Concomitant]
     Active Substance: HEPARIN SODIUM
     Dosage: 10000 IU
     Dates: start: 20230716, end: 20230716
  40. NORADRENALINE VIATRIS 2 mg/ml SULFITE-FREE, solution for diluted infus [Concomitant]
     Indication: Product used for unknown indication
     Dosage: 0.2 MG
     Dates: start: 20230626, end: 20230719
  41. NORADRENALINE VIATRIS 2 mg/ml SULFITE-FREE, solution for diluted infus [Concomitant]
     Dosage: 0.2 MG
     Dates: start: 20230613, end: 20230618
  42. NORADRENALINE VIATRIS 2 mg/ml SULFITE-FREE, solution for diluted infus [Concomitant]
     Dosage: 0.2 MG
     Dates: start: 20230719, end: 20230817
  43. KETAMINE PANPHARMA 250 mg/5 ml, solution for injection (I.V.-I.M.) [Concomitant]
     Indication: Product used for unknown indication
     Dosage: 0.2 MG/KG
     Dates: start: 20230702, end: 20230717
  44. NOVORAPID 100 U/ml, solution for injection in vial [Concomitant]
     Indication: Product used for unknown indication
     Dosage: ACCORDING TO PROTOCOL
     Route: 058
     Dates: start: 20230615

REACTIONS (1)
  - Hypertriglyceridaemia [Not Recovered/Not Resolved]

NARRATIVE: CASE EVENT DATE: 20230702
